FAERS Safety Report 5786014-8 (Version None)
Quarter: 2008Q2

REPORT INFORMATION
  Report Type: 
  Country: None (occurrence: None)
  Receive Date: 20080624
  Receipt Date: 20080624
  Transmission Date: 20081010
  Serious: Yes (Hospitalization)
  Sender: FDA-Public Use
  Company Number: PHHO2007IT05951

PATIENT
  Sex: Male
  Weight: 74 kg

DRUGS (4)
  1. NO TREATMENT RECEIVED NOMED [Suspect]
     Indication: ESSENTIAL HYPERTENSION
     Dosage: NO TREATMENT
  2. ALISKIREN [Suspect]
     Indication: ESSENTIAL HYPERTENSION
     Dosage: CODE NOT BROKEN
     Route: 048
     Dates: start: 20070316, end: 20070328
  3. TORVAST [Concomitant]
  4. LUCEN [Concomitant]

REACTIONS (7)
  - ATRIAL FIBRILLATION [None]
  - DISEASE PROGRESSION [None]
  - DRUG INEFFECTIVE [None]
  - HEART RATE INCREASED [None]
  - HYPERTENSION [None]
  - LEFT ATRIAL DILATATION [None]
  - MITRAL VALVE INCOMPETENCE [None]
